FAERS Safety Report 10264116 (Version 1)
Quarter: 2014Q2

REPORT INFORMATION
  Report Type: Spontaneous
  Country: FR (occurrence: FR)
  Receive Date: 20140627
  Receipt Date: 20140627
  Transmission Date: 20141212
  Serious: Yes (Disabling)
  Sender: FDA-Public Use
  Company Number: FR-ROCHE-1425335

PATIENT
  Sex: Male

DRUGS (4)
  1. XOLAIR [Suspect]
     Indication: ASTHMA
     Dosage: VIAL
     Route: 058
     Dates: start: 201311
  2. XOLAIR [Suspect]
     Route: 058
     Dates: start: 20140620, end: 20140620
  3. PREVISCAN (FRANCE) [Concomitant]
  4. OLMETEC [Concomitant]

REACTIONS (3)
  - Paraesthesia [Not Recovered/Not Resolved]
  - Bronchitis [Recovered/Resolved]
  - Oropharyngeal candidiasis [Recovered/Resolved]
